FAERS Safety Report 16435781 (Version 1)
Quarter: 2019Q2

REPORT INFORMATION
  Report Type: Spontaneous
  Country: EG (occurrence: EG)
  Receive Date: 20190614
  Receipt Date: 20190614
  Transmission Date: 20190711
  Serious: Yes (Life-Threatening, Hospitalization)
  Sender: FDA-Public Use
  Company Number: PHHY2019EG136828

PATIENT
  Age: 50 Year
  Sex: Male

DRUGS (1)
  1. CEFTRIAXONE SANDOZ [Suspect]
     Active Substance: CEFTRIAXONE
     Indication: GASTROINTESTINAL INFECTION
     Dosage: 1 G, QD
     Route: 030

REACTIONS (5)
  - Hypotension [Unknown]
  - Anaphylactic shock [Recovered/Resolved]
  - Dyspnoea [Unknown]
  - Rash [Unknown]
  - Cyanosis [Unknown]

NARRATIVE: CASE EVENT DATE: 201905
